FAERS Safety Report 14416824 (Version 1)
Quarter: 2018Q1

REPORT INFORMATION
  Report Type: Spontaneous
  Country: US (occurrence: US)
  Receive Date: 20180119
  Receipt Date: 20180119
  Transmission Date: 20180509
  Serious: Yes (Hospitalization)
  Sender: FDA-Public Use
  Company Number: None

PATIENT
  Age: 72 Year
  Sex: Male

DRUGS (9)
  1. ENOXAPARIN [Suspect]
     Active Substance: ENOXAPARIN
     Indication: PULMONARY EMBOLISM
     Route: 058
     Dates: start: 20171108, end: 20171108
  2. DOCUSATE [Concomitant]
     Active Substance: DOCUSATE
  3. COENZYME Q10 [Concomitant]
     Active Substance: UBIDECARENONE
  4. ONDANSETRON [Concomitant]
     Active Substance: ONDANSETRON
  5. ASCORBIC ACID. [Concomitant]
     Active Substance: ASCORBIC ACID
  6. ATORVASTATIN [Concomitant]
     Active Substance: ATORVASTATIN
  7. ASPIRIN. [Concomitant]
     Active Substance: ASPIRIN
  8. NITROGLYCERIN. [Concomitant]
     Active Substance: NITROGLYCERIN
  9. CHLORHEXADINE [Concomitant]
     Active Substance: CHLORHEXIDINE

REACTIONS (4)
  - Dizziness [None]
  - Dyspnoea exertional [None]
  - Abdominal pain upper [None]
  - Melaena [None]

NARRATIVE: CASE EVENT DATE: 20171120
